FAERS Safety Report 13238318 (Version 1)
Quarter: 2017Q1

REPORT INFORMATION
  Report Type: Spontaneous
  Country: US (occurrence: US)
  Receive Date: 20170215
  Receipt Date: 20170215
  Transmission Date: 20170428
  Serious: Yes (Hospitalization)
  Sender: FDA-Public Use
  Company Number: None

PATIENT
  Age: 46 Year
  Sex: Female

DRUGS (11)
  1. CEPHALEXIN. [Concomitant]
     Active Substance: CEPHALEXIN
  2. FISH OIL [Concomitant]
     Active Substance: FISH OIL
  3. PREDNISONE. [Concomitant]
     Active Substance: PREDNISONE
  4. OXYCODONE [Concomitant]
     Active Substance: OXYCODONE
  5. BOTOX [Suspect]
     Active Substance: ONABOTULINUMTOXINA
     Indication: MIGRAINE
  6. GABAPENTIN. [Concomitant]
     Active Substance: GABAPENTIN
  7. HYOSCAMINE [Concomitant]
  8. TIZANIDINE. [Concomitant]
     Active Substance: TIZANIDINE
  9. VITAMIN D [Concomitant]
     Active Substance: CHOLECALCIFEROL
  10. TOPAMAX [Concomitant]
     Active Substance: TOPIRAMATE
  11. HAIR SKIN NAIL VITAMINS [Concomitant]

REACTIONS (10)
  - Dysphagia [None]
  - Migraine [None]
  - Eye discharge [None]
  - Muscle twitching [None]
  - Rash [None]
  - Dysphonia [None]
  - Eye disorder [None]
  - Dyspnoea [None]
  - Urinary incontinence [None]
  - Muscle spasms [None]

NARRATIVE: CASE EVENT DATE: 20170123
